FAERS Safety Report 19496018 (Version 3)
Quarter: 2021Q3

REPORT INFORMATION
  Report Type: Spontaneous
  Country: US (occurrence: US)
  Receive Date: 20210706
  Receipt Date: 20210722
  Transmission Date: 20211014
  Serious: Yes (Hospitalization)
  Sender: FDA-Public Use
  Company Number: US-ENDO PHARMACEUTICALS INC-2021-009973

PATIENT
  Age: 9 Month
  Sex: Female

DRUGS (2)
  1. BOSENTAN. [Suspect]
     Active Substance: BOSENTAN
     Indication: PULMONARY HYPERTENSION
     Dosage: 4.5 MG, BID
     Dates: start: 20210505
  2. BOSENTAN. [Suspect]
     Active Substance: BOSENTAN
     Dosage: 0.72 ML, BID
     Dates: start: 20210504

REACTIONS (4)
  - Pulmonary arterial hypertension [Recovered/Resolved]
  - Respiratory distress [Recovered/Resolved]
  - Product dose omission issue [Unknown]
  - Off label use [Not Recovered/Not Resolved]

NARRATIVE: CASE EVENT DATE: 20210504
